FAERS Safety Report 10434021 (Version 1)
Quarter: 2014Q3

REPORT INFORMATION
  Report Type: Spontaneous
  Country: CA (occurrence: CA)
  Receive Date: 20140905
  Receipt Date: 20140905
  Transmission Date: 20150326
  Serious: Yes (Other)
  Sender: FDA-Public Use
  Company Number: CA-PERRIGO-14CA008474

PATIENT
  Age: 17 Year
  Sex: Male

DRUGS (2)
  1. ACETAMINOPHEN 650MG ER 544 [Suspect]
     Active Substance: ACETAMINOPHEN
     Indication: OVERDOSE
     Dosage: UNK, SINGLE
     Route: 048
  2. DEXTROMETHORPHAN [Suspect]
     Active Substance: DEXTROMETHORPHAN
     Indication: OVERDOSE
     Dosage: UNK, SINGLE
     Route: 048

REACTIONS (4)
  - Overdose [Recovered/Resolved]
  - Mental status changes [Recovered/Resolved]
  - Hepatotoxicity [Recovered/Resolved]
  - Abdominal pain [Recovered/Resolved]
